FAERS Safety Report 5197534-1 (Version None)
Quarter: 2006Q4

REPORT INFORMATION
  Report Type: 
  Country: None (occurrence: None)
  Receive Date: 20060926
  Receipt Date: 20060824
  Transmission Date: 20070319
  Serious: No
  Sender: FDA-Public Use
  Company Number: SP00959

PATIENT
  Age: 73 Year
  Sex: Female
  Weight: 55.3388 kg

DRUGS (5)
  1. XIFAXAN [Suspect]
     Indication: BACTERIAL DIARRHOEA
     Dosage: 400MG, TID; ORAL
     Route: 048
     Dates: start: 20060808, end: 20060817
  2. DYAZIDE [Concomitant]
  3. ARTHROTEC [Concomitant]
  4. LEVOXYL [Concomitant]
  5. COZAAR [Concomitant]

REACTIONS (3)
  - ABDOMINAL PAIN [None]
  - CONDITION AGGRAVATED [None]
  - DRUG INEFFECTIVE [None]
